FAERS Safety Report 21492224 (Version 1)
Quarter: 2022Q4

REPORT INFORMATION
  Report Type: Spontaneous
  Country: US (occurrence: None)
  Receive Date: 20221020
  Receipt Date: 20221020
  Transmission Date: 20230113
  Serious: Yes (Life-Threatening, Hospitalization)
  Sender: FDA-Public Use
  Company Number: None

PATIENT
  Age: 78 Year
  Sex: Female
  Weight: 85.5 kg

DRUGS (1)
  1. FENTANYL [Suspect]
     Active Substance: FENTANYL
     Indication: Pain management
     Dates: start: 20221001, end: 20221007

REACTIONS (11)
  - Wrong technique in product usage process [None]
  - Lethargy [None]
  - Hypophagia [None]
  - Acute kidney injury [None]
  - Dyspnoea [None]
  - Asthenia [None]
  - Malnutrition [None]
  - Dehydration [None]
  - Depression [None]
  - Extra dose administered [None]
  - Toxicity to various agents [None]

NARRATIVE: CASE EVENT DATE: 20221007
